FAERS Safety Report 9197414 (Version 1)
Quarter: 2013Q1

REPORT INFORMATION
  Report Type: Spontaneous
  Country: TH (occurrence: TH)
  Receive Date: 20130328
  Receipt Date: 20130328
  Transmission Date: 20140127
  Serious: Yes (Other)
  Sender: FDA-Public Use
  Company Number: TH-VIIV HEALTHCARE LIMITED-B0365985A

PATIENT
  Age: 31 Year
  Sex: Female
  Weight: 50 kg

DRUGS (2)
  1. EPIVIR [Suspect]
     Indication: ACQUIRED IMMUNODEFICIENCY SYNDROME
     Dosage: 150MG UNKNOWN
     Route: 065
     Dates: start: 19970902, end: 19970930
  2. ZIDOVUDINE [Concomitant]
     Indication: ACQUIRED IMMUNODEFICIENCY SYNDROME
     Dosage: 200MG TWICE PER DAY
     Route: 048
     Dates: start: 19970902, end: 19970930

REACTIONS (2)
  - Leukopenia [Recovered/Resolved]
  - Neutropenia [Recovered/Resolved]
